FAERS Safety Report 19954088 (Version 1)
Quarter: 2021Q4

REPORT INFORMATION
  Report Type: Spontaneous
  Country: PT (occurrence: PT)
  Receive Date: 20211014
  Receipt Date: 20211014
  Transmission Date: 20220303
  Serious: Yes (Other)
  Sender: FDA-Public Use
  Company Number: PT-VIIV HEALTHCARE ULC-PT2021EME211047

PATIENT
  Age: 40 Year
  Sex: Female

DRUGS (1)
  1. DOLUTEGRAVIR [Suspect]
     Active Substance: DOLUTEGRAVIR
     Indication: HIV infection
     Dosage: UNK

REACTIONS (3)
  - Seizure [Unknown]
  - Blood HIV RNA increased [Unknown]
  - Conversion disorder [Unknown]

NARRATIVE: CASE EVENT DATE: 20170601
